FAERS Safety Report 25178426 (Version 1)
Quarter: 2025Q2

REPORT INFORMATION
  Report Type: Spontaneous
  Country: US (occurrence: US)
  Receive Date: 20250409
  Receipt Date: 20250409
  Transmission Date: 20250717
  Serious: Yes (Other)
  Sender: SEPTODONT
  Company Number: US-SEPTODONT-2025019538

PATIENT
  Age: 52 Year
  Sex: Female

DRUGS (2)
  1. BENZOCAINE (BENZOCAINE) [Suspect]
     Active Substance: BENZOCAINE
  2. HYDROXYCHLOROQUINE [Concomitant]
     Active Substance: HYDROXYCHLOROQUINE
     Indication: Systemic lupus erythematosus

REACTIONS (5)
  - Hypoxia [Unknown]
  - Hypotension [Unknown]
  - Methaemoglobinaemia [Recovering/Resolving]
  - Cyanosis [Unknown]
  - Tachycardia [Unknown]
